FAERS Safety Report 4763324-4 (Version None)
Quarter: 2005Q3

REPORT INFORMATION
  Report Type: 
  Country: None (occurrence: None)
  Receive Date: 20050908
  Receipt Date: 20050830
  Transmission Date: 20060218
  Serious: Yes (Death)
  Sender: FDA-Public Use
  Company Number: DE-BRISTOL-MYERS SQUIBB COMPANY-13098108

PATIENT
  Age: 46 Year
  Sex: Female

DRUGS (5)
  1. MITOMYCIN [Suspect]
     Indication: OVARIAN CANCER
     Route: 042
     Dates: start: 20040726, end: 20050105
  2. DOXORUBICIN HYDROCHLORIDE [Suspect]
     Indication: OVARIAN CANCER
  3. IRINOTECAN [Concomitant]
     Indication: OVARIAN CANCER
     Route: 042
     Dates: start: 20040726, end: 20050105
  4. ETOPOSIDE [Concomitant]
     Indication: OVARIAN CANCER
     Route: 048
     Dates: start: 20040906, end: 20050105
  5. PREDNISOLONE [Concomitant]
     Indication: OVARIAN CANCER
     Route: 048
     Dates: start: 20040726, end: 20050105

REACTIONS (1)
  - RIGHT VENTRICULAR FAILURE [None]
